FAERS Safety Report 9974501 (Version 1)
Quarter: 2014Q1

REPORT INFORMATION
  Report Type: Report from Study
  Country: US (occurrence: US)
  Receive Date: 20140306
  Receipt Date: 20140306
  Transmission Date: 20141002
  Serious: No
  Sender: FDA-Public Use
  Company Number: US-ABBVIE-13P-163-1157060-00

PATIENT
  Age: 52 Year
  Sex: Female

DRUGS (13)
  1. HUMIRA [Suspect]
     Indication: RHEUMATOID ARTHRITIS
     Dates: start: 20130712
  2. METHOTREXATE [Concomitant]
     Indication: RHEUMATOID ARTHRITIS
  3. PREDNISONE [Concomitant]
     Indication: RHEUMATOID ARTHRITIS
  4. PREDNISONE [Concomitant]
     Dosage: WEANING OFF SLOWLY
  5. ZANTAC [Concomitant]
     Indication: GASTROOESOPHAGEAL REFLUX DISEASE
  6. COLON HEALTH PROBIOTIC [Concomitant]
     Indication: DIVERTICULITIS
     Dosage: DAILY
  7. FOLIC ACID [Concomitant]
     Indication: VITAMIN SUPPLEMENTATION
  8. BLACK COHASH [Concomitant]
     Indication: HOT FLUSH
     Dosage: DAILY
  9. ADVIL [Concomitant]
     Indication: PAIN
  10. TYLENOL [Concomitant]
     Indication: PAIN
  11. MOVE FREE [Concomitant]
     Indication: ARTHROPATHY
  12. ADVIL PM [Concomitant]
     Indication: INSOMNIA
     Dosage: AT BEDTIME
  13. MELATONIN [Concomitant]
     Indication: INSOMNIA
     Dosage: AT BEDTIME

REACTIONS (4)
  - Injection site vesicles [Not Recovered/Not Resolved]
  - Injection site haemorrhage [Not Recovered/Not Resolved]
  - Injection site bruising [Not Recovered/Not Resolved]
  - Pain in extremity [Not Recovered/Not Resolved]
